FAERS Safety Report 8777000 (Version 2)
Quarter: 2013Q1

REPORT INFORMATION
  Report Type: Spontaneous
  Country: US (occurrence: US)
  Receive Date: 20120911
  Receipt Date: 20130130
  Transmission Date: 20140127
  Serious: Yes (Hospitalization)
  Sender: FDA-Public Use
  Company Number: US-BAYER-2012-093794

PATIENT
  Age: 24 Year
  Sex: Female
  Weight: 78.46 kg

DRUGS (7)
  1. YAZ [Suspect]
     Dosage: UNK
     Dates: start: 20070125, end: 20080726
  2. YASMIN [Suspect]
     Dosage: UNK
     Dates: start: 20070125, end: 20080726
  3. OCELLA [Suspect]
     Dosage: UNK
     Dates: start: 20070125, end: 20080726
  4. PERCOCET [Concomitant]
  5. FLEXERIL [Concomitant]
     Indication: BACK PAIN
  6. TORADOL [Concomitant]
     Indication: PLEURITIC PAIN
  7. NAPROSYN [Concomitant]
     Indication: BACK PAIN

REACTIONS (9)
  - Pulmonary embolism [None]
  - Pulmonary embolism [None]
  - Deep vein thrombosis [None]
  - Injury [None]
  - Pain [None]
  - Emotional distress [None]
  - General physical health deterioration [None]
  - Anxiety [None]
  - Pain [None]
